FAERS Safety Report 7371489-3 (Version None)
Quarter: 2011Q1

REPORT INFORMATION
  Report Type: 
  Country: None (occurrence: None)
  Receive Date: 20110322
  Receipt Date: 20110322
  Transmission Date: 20110831
  Serious: Yes (Life-Threatening, Hospitalization)
  Sender: FDA-Public Use
  Company Number: None

PATIENT
  Age: 68 Year
  Sex: Female
  Weight: 67 kg

DRUGS (1)
  1. INTEGRILIN [Suspect]
     Indication: CORONARY ARTERY DISEASE
     Dosage: 51.67 MG OVER 3HRS 20 MIN IV DRIP
     Route: 041
     Dates: start: 20110224, end: 20110224

REACTIONS (1)
  - PLATELET COUNT DECREASED [None]
